FAERS Safety Report 8599942-5 (Version None)
Quarter: 2012Q3

REPORT INFORMATION
  Report Type: 
  Country: None (occurrence: None)
  Receive Date: 20120816
  Receipt Date: 20120808
  Transmission Date: 20120928
  Serious: Yes (Other)
  Sender: FDA-Public Use
  Company Number: CH-JNJFOC-20120807713

PATIENT
  Sex: Female
  Weight: 55 kg

DRUGS (5)
  1. XARELTO [Suspect]
     Indication: THROMBOSIS PROPHYLAXIS
     Route: 048
     Dates: start: 20120427, end: 20120521
  2. VOLTAREN [Concomitant]
     Route: 048
     Dates: start: 20120426, end: 20120504
  3. PANTOPRAZOLE [Concomitant]
     Route: 048
     Dates: start: 20120427, end: 20120504
  4. HYDROCHLOROTHIAZIDE [Concomitant]
     Route: 048
     Dates: start: 20091114
  5. ACETAMINOPHEN [Suspect]
     Indication: PRODUCT USED FOR UNKNOWN INDICATION
     Route: 048
     Dates: start: 20120426, end: 20120521

REACTIONS (5)
  - JAUNDICE [None]
  - LIVER INJURY [None]
  - PRURITUS [None]
  - APPETITE DISORDER [None]
  - NAUSEA [None]
